FAERS Safety Report 5150355-8 (Version None)
Quarter: 2006Q4

REPORT INFORMATION
  Report Type: 
  Country: None (occurrence: None)
  Receive Date: 20061110
  Receipt Date: 20061110
  Transmission Date: 20070319
  Serious: Yes (Other)
  Sender: FDA-Public Use
  Company Number: None

PATIENT
  Age: 20 Year
  Sex: Female
  Weight: 63.5036 kg

DRUGS (1)
  1. ACETAMINOPHEN 500MG PERRIGO [Suspect]
     Indication: HEADACHE
     Dosage: 1-2 PILLS PO
     Route: 048
     Dates: start: 20061028, end: 20061107

REACTIONS (4)
  - GASTRIC DISORDER [None]
  - PHARMACEUTICAL PRODUCT COMPLAINT [None]
  - PHARYNGEAL INJURY [None]
  - POOR QUALITY DRUG ADMINISTERED [None]
